FAERS Safety Report 15994154 (Version 1)
Quarter: 2019Q1

REPORT INFORMATION
  Report Type: Spontaneous
  Country: CA (occurrence: CA)
  Receive Date: 20190222
  Receipt Date: 20190222
  Transmission Date: 20190418
  Serious: Yes (Hospitalization, Other)
  Sender: FDA-Public Use
  Company Number: CA-TAKEDA-2019TUS008329

PATIENT
  Age: 5 Week
  Sex: Male

DRUGS (1)
  1. PREVACID [Suspect]
     Active Substance: LANSOPRAZOLE
     Indication: GASTROOESOPHAGEAL REFLUX DISEASE
     Dosage: UNK, QD
     Route: 048
     Dates: start: 20180725, end: 20180725

REACTIONS (4)
  - Lactose intolerance [Not Recovered/Not Resolved]
  - Off label use [Unknown]
  - Rash [Unknown]
  - Movement disorder [Unknown]

NARRATIVE: CASE EVENT DATE: 20180725
